FAERS Safety Report 13217417 (Version 1)
Quarter: 2017Q1

REPORT INFORMATION
  Report Type: Spontaneous
  Country: US (occurrence: US)
  Receive Date: 20170210
  Receipt Date: 20170210
  Transmission Date: 20170428
  Serious: No
  Sender: FDA-Public Use
  Company Number: US-ASTRAZENECA-2017SE11681

PATIENT
  Sex: Male
  Weight: 96.2 kg

DRUGS (8)
  1. SEROQUEL [Suspect]
     Active Substance: QUETIAPINE FUMARATE
     Indication: DEPRESSION
     Route: 048
  2. KOLONOPIN [Concomitant]
     Indication: SLEEP DISORDER
     Dosage: 0.5MG 2-3 TIMES A DAY
     Route: 065
  3. SEROQUEL [Suspect]
     Active Substance: QUETIAPINE FUMARATE
     Indication: SLEEP DISORDER
     Dosage: GENERIC, 300 MG AT NIGHT
     Route: 048
  4. KOLONOPIN [Concomitant]
     Indication: DEPRESSION
     Dosage: 0.5MG 2-3 TIMES A DAY
     Route: 065
  5. SEROQUEL [Suspect]
     Active Substance: QUETIAPINE FUMARATE
     Indication: DEPRESSION
     Dosage: HALF TABLET
     Route: 048
  6. SEROQUEL [Suspect]
     Active Substance: QUETIAPINE FUMARATE
     Indication: SLEEP DISORDER
     Dosage: HALF TABLET
     Route: 048
  7. SEROQUEL [Suspect]
     Active Substance: QUETIAPINE FUMARATE
     Indication: SLEEP DISORDER
     Route: 048
  8. SEROQUEL [Suspect]
     Active Substance: QUETIAPINE FUMARATE
     Indication: DEPRESSION
     Dosage: GENERIC, 300 MG AT NIGHT
     Route: 048

REACTIONS (8)
  - Abdominal discomfort [Unknown]
  - Protein urine [Unknown]
  - Off label use [Unknown]
  - Intentional product misuse [Unknown]
  - Vomiting [Unknown]
  - Product use issue [Unknown]
  - Blood pressure increased [Unknown]
  - Insomnia [Unknown]
